FAERS Safety Report 5396732-1 (Version None)
Quarter: 2007Q3

REPORT INFORMATION
  Report Type: 
  Country: None (occurrence: None)
  Receive Date: 20070725
  Receipt Date: 20070713
  Transmission Date: 20080115
  Serious: Yes (Death)
  Sender: FDA-Public Use
  Company Number: HQWYE056716JUL07

PATIENT

DRUGS (1)
  1. PHENERGAN HCL [Suspect]
     Indication: NAUSEA
     Dosage: ^ONE DOSE^
     Route: 064
     Dates: start: 20070701, end: 20070701

REACTIONS (3)
  - DRUG EXPOSURE DURING PREGNANCY [None]
  - FOETAL GROWTH RETARDATION [None]
  - INTRA-UTERINE DEATH [None]
